FAERS Safety Report 7623400-5 (Version None)
Quarter: 2011Q3

REPORT INFORMATION
  Report Type: 
  Country: None (occurrence: None)
  Receive Date: 20110720
  Receipt Date: 20110713
  Transmission Date: 20111222
  Serious: Yes (Other)
  Sender: FDA-Public Use
  Company Number: AU-ROCHE-790262

PATIENT
  Sex: Male

DRUGS (2)
  1. CAPECITABINE [Suspect]
     Dosage: FREQUENCY: CYCLICAL.
     Route: 065
  2. PHENYTOIN SODIUM [Interacting]
     Dosage: FREQUENCY: DAILY.
     Route: 065
     Dates: end: 20110502

REACTIONS (2)
  - DRUG LEVEL INCREASED [None]
  - TOXICITY TO VARIOUS AGENTS [None]
